FAERS Safety Report 5794340-1 (Version None)
Quarter: 2008Q2

REPORT INFORMATION
  Report Type: 
  Country: None (occurrence: None)
  Receive Date: 20080625
  Receipt Date: 20080610
  Transmission Date: 20081010
  Serious: Yes (Death)
  Sender: FDA-Public Use
  Company Number: 2008AL006760

PATIENT
  Age: 86 Year
  Sex: Male

DRUGS (6)
  1. DIGOXIN [Suspect]
     Indication: ARRHYTHMIA
     Dosage: 0.125 MG, DAILY, PO
     Route: 048
  2. SOTALOL HCL [Concomitant]
  3. FOLTYX [Concomitant]
  4. COUMADIN [Concomitant]
  5. GALANTAMINE HYDROBROMIDE [Concomitant]
  6. CRESTOR [Concomitant]

REACTIONS (6)
  - ARRHYTHMIA [None]
  - COMA [None]
  - COUGH [None]
  - DIZZINESS [None]
  - GAIT DISTURBANCE [None]
  - VISION BLURRED [None]
